FAERS Safety Report 9290999 (Version 1)
Quarter: 2013Q2

REPORT INFORMATION
  Report Type: Report from Study
  Country: FR (occurrence: FR)
  Receive Date: 20130515
  Receipt Date: 20130515
  Transmission Date: 20140414
  Serious: Yes (Life-Threatening, Hospitalization, Other)
  Sender: FDA-Public Use
  Company Number: FR-009507513-1111FRA00055

PATIENT
  Age: 57 Year
  Sex: Male
  Weight: 103 kg

DRUGS (4)
  1. SITAGLIPTIN PHOSPHATE [Suspect]
     Indication: TYPE 2 DIABETES MELLITUS
     Dosage: 100 MG, QD
     Route: 048
     Dates: start: 20100302, end: 20110721
  2. AMAREL [Suspect]
     Indication: TYPE 2 DIABETES MELLITUS
     Dosage: 3 MG, BID
     Route: 048
     Dates: start: 20100302, end: 20100928
  3. AMAREL [Suspect]
     Dosage: 4 MG, QD
     Route: 048
     Dates: start: 20100928, end: 20110721
  4. GLUCOPHAGE [Concomitant]
     Dosage: UNK
     Dates: start: 20100302, end: 20100527

REACTIONS (2)
  - Myocardial infarction [Recovered/Resolved]
  - Drug ineffective [Recovered/Resolved]
